FAERS Safety Report 14335942 (Version 1)
Quarter: 2017Q4

REPORT INFORMATION
  Report Type: Spontaneous
  Country: GR (occurrence: GR)
  Receive Date: 20171229
  Receipt Date: 20171229
  Transmission Date: 20180321
  Serious: Yes (Other)
  Sender: FDA-Public Use
  Company Number: GR-BEH-2017084281

PATIENT
  Age: 6 Year
  Sex: Male
  Weight: 29 kg

DRUGS (16)
  1. HAEMATE P [Suspect]
     Active Substance: ANTIHEMOPHILIC FACTOR HUMAN
     Indication: PROPHYLAXIS
     Dosage: 1000 IU, TOT
     Route: 042
     Dates: start: 20120323, end: 20120323
  2. HAEMATE P [Suspect]
     Active Substance: ANTIHEMOPHILIC FACTOR HUMAN
     Indication: TRAUMATIC HAEMATOMA
     Dosage: 500 IU, TOT
     Route: 042
     Dates: start: 20130115, end: 20130115
  3. HAEMATE P [Suspect]
     Active Substance: ANTIHEMOPHILIC FACTOR HUMAN
     Dosage: UNK, TIW (CURRENT TREATMENT)
     Route: 042
  4. HAEMATE P [Suspect]
     Active Substance: ANTIHEMOPHILIC FACTOR HUMAN
     Indication: FACTOR VIII DEFICIENCY
     Dosage: 1000 IU, TOT
     Route: 042
     Dates: start: 20120322, end: 20120322
  5. HAEMATE P [Suspect]
     Active Substance: ANTIHEMOPHILIC FACTOR HUMAN
     Indication: HEAD INJURY
     Dosage: 500 IU, TOT
     Route: 042
     Dates: start: 20120622, end: 20120622
  6. HAEMATE P [Suspect]
     Active Substance: ANTIHEMOPHILIC FACTOR HUMAN
     Dosage: 1000 IU, TOT
     Route: 042
     Dates: start: 20130711, end: 20130711
  7. HAEMATE P [Suspect]
     Active Substance: ANTIHEMOPHILIC FACTOR HUMAN
     Indication: ORAL MUCOSA HAEMATOMA
     Dosage: 1000 IU, TOT
     Route: 042
     Dates: start: 20120621, end: 20120621
  8. HAEMATE P [Suspect]
     Active Substance: ANTIHEMOPHILIC FACTOR HUMAN
     Dosage: 1000 IU, TOT
     Route: 042
     Dates: start: 20130715, end: 20130715
  9. HAEMATE P [Suspect]
     Active Substance: ANTIHEMOPHILIC FACTOR HUMAN
     Dosage: 1000 IU, TOT (2 X 500 IU)
     Route: 042
     Dates: start: 20150904, end: 20150904
  10. HAEMATE P [Suspect]
     Active Substance: ANTIHEMOPHILIC FACTOR HUMAN
     Dosage: 1000 IU, TOT
     Route: 042
     Dates: start: 20150914, end: 20150914
  11. HAEMATE P [Suspect]
     Active Substance: ANTIHEMOPHILIC FACTOR HUMAN
     Dosage: 1000 IU, TOT
     Route: 042
     Dates: start: 20150925, end: 20150925
  12. HAEMATE P [Suspect]
     Active Substance: ANTIHEMOPHILIC FACTOR HUMAN
     Dosage: 1000 IU, TOT
     Route: 042
     Dates: start: 20150917, end: 20150917
  13. HAEMATE P [Suspect]
     Active Substance: ANTIHEMOPHILIC FACTOR HUMAN
     Dosage: 1000 IU, TOT
     Route: 042
     Dates: start: 20150922, end: 20150922
  14. HAEMATE P [Suspect]
     Active Substance: ANTIHEMOPHILIC FACTOR HUMAN
     Indication: TONGUE INJURY
     Dosage: 1000 IU, TOT
     Route: 042
     Dates: start: 20130114, end: 20130114
  15. HAEMATE P [Suspect]
     Active Substance: ANTIHEMOPHILIC FACTOR HUMAN
     Dosage: 1000 IU, TOT
     Route: 042
     Dates: start: 20130709, end: 20130709
  16. HAEMATE P [Suspect]
     Active Substance: ANTIHEMOPHILIC FACTOR HUMAN
     Dosage: 500 IU, TOT
     Route: 042
     Dates: start: 20130117, end: 20130117

REACTIONS (1)
  - Anti factor VIII antibody positive [Recovered/Resolved]

NARRATIVE: CASE EVENT DATE: 201509
